FAERS Safety Report 18173129 (Version 1)
Quarter: 2020Q3

REPORT INFORMATION
  Report Type: Spontaneous
  Country: CA (occurrence: CA)
  Receive Date: 20200819
  Receipt Date: 20200819
  Transmission Date: 20201103
  Serious: Yes (Other)
  Sender: FDA-Public Use
  Company Number: CA-ANIPHARMA-2020-CA-001595

PATIENT
  Age: 58 Year
  Sex: Male

DRUGS (9)
  1. ETRAVIRINE [Suspect]
     Active Substance: ETRAVIRINE
     Dosage: 200 MG Q12H / 200 MG UNK
     Route: 065
  2. LEUPRORELIN [Suspect]
     Active Substance: LEUPROLIDE ACETATE
     Route: 065
  3. RALTEGRAVIR. [Concomitant]
     Active Substance: RALTEGRAVIR
     Route: 065
  4. DOLUTEGRAVIR SODIUM [Suspect]
     Active Substance: DOLUTEGRAVIR SODIUM
     Dosage: 50 MG Q12H
     Route: 065
  5. BICALUTAMIDE. [Suspect]
     Active Substance: BICALUTAMIDE
     Indication: METASTASES TO BONE
     Route: 048
  6. ENZALUTAMIDE [Suspect]
     Active Substance: ENZALUTAMIDE
     Route: 065
  7. DARUNAVIR [Suspect]
     Active Substance: DARUNAVIR
     Dosage: 600 MG Q12H
     Route: 048
  8. EMTRICITABINE+TENOFOVIR ALAFENAMIDE [Concomitant]
     Active Substance: EMTRICITABINE\TENOFOVIR ALAFENAMIDE FUMARATE
     Route: 065
  9. RITONAVIR. [Suspect]
     Active Substance: RITONAVIR
     Dosage: 200 MG Q12H / 100 MG UNK
     Route: 065

REACTIONS (4)
  - Prostate cancer [Unknown]
  - Drug ineffective [Unknown]
  - Drug level decreased [Unknown]
  - Drug interaction [Unknown]
